FAERS Safety Report 9181293 (Version 1)
Quarter: 2013Q1

REPORT INFORMATION
  Report Type: Spontaneous
  Country: US (occurrence: US)
  Receive Date: 20130322
  Receipt Date: 20130322
  Transmission Date: 20140127
  Serious: No
  Sender: FDA-Public Use
  Company Number: US-PFIZER INC-2013091061

PATIENT
  Sex: Female

DRUGS (16)
  1. SUTENT [Suspect]
     Indication: RENAL CELL CARCINOMA
     Dosage: UNK
  2. CALCIUM + D [Concomitant]
     Dosage: UNK
  3. LIPITOR [Concomitant]
     Dosage: UNK
  4. PHENERGAN [Concomitant]
     Dosage: UNK
  5. CITALOPRAM HYDROBROMIDE [Concomitant]
     Dosage: UNK
  6. LORAZEPAM [Concomitant]
     Dosage: UNK
  7. VICODIN HP [Concomitant]
     Dosage: UNK
  8. FENOFIBRATE [Concomitant]
     Dosage: UNK
  9. LOSARTAN POTASSIUM [Concomitant]
     Dosage: UNK
  10. VITAMIN D3 [Concomitant]
     Dosage: UNK
  11. HUMALOG KWIKPEN [Concomitant]
     Dosage: UNK
  12. METOPROLOL TARTRATE [Concomitant]
     Dosage: UNK
  13. XALATAN [Concomitant]
     Dosage: UNK
  14. LANTUS [Concomitant]
     Dosage: UNK
  15. LEVOTHYROXINE SODIUM [Concomitant]
     Dosage: UNK
  16. OMEPRAZOLE [Concomitant]
     Dosage: UNK

REACTIONS (2)
  - Diarrhoea [Unknown]
  - Asthenia [Unknown]
